FAERS Safety Report 13416499 (Version 2)
Quarter: 2017Q2

REPORT INFORMATION
  Report Type: Spontaneous
  Country: ES (occurrence: ES)
  Receive Date: 20170407
  Receipt Date: 20170414
  Transmission Date: 20170830
  Serious: No
  Sender: FDA-Public Use
  Company Number: ES-SA-2017SA055373

PATIENT
  Age: 42 Year
  Sex: Female
  Weight: 110 kg

DRUGS (1)
  1. ARAVA [Suspect]
     Active Substance: LEFLUNOMIDE
     Route: 065
     Dates: start: 201508

REACTIONS (1)
  - Exposure during pregnancy [Unknown]
